FAERS Safety Report 17722754 (Version 11)
Quarter: 2021Q1

REPORT INFORMATION
  Report Type: Report from Study
  Country: None (occurrence: CO)
  Receive Date: 20200429
  Receipt Date: 20210226
  Transmission Date: 20210419
  Serious: Yes (Hospitalization, Other)
  Sender: FDA-Public Use
  Company Number: CO-ABBVIE-20K-036-3334304-00

PATIENT
  Sex: Male
  Weight: 98 kg

DRUGS (2)
  1. HUMIRA [Suspect]
     Active Substance: ADALIMUMAB
     Indication: PSORIATIC ARTHROPATHY
     Route: 058
     Dates: start: 20110619
  2. HUMIRA [Suspect]
     Active Substance: ADALIMUMAB
     Indication: PSORIATIC ARTHROPATHY
     Route: 058
     Dates: end: 20200402

REACTIONS (10)
  - Sputum discoloured [Recovering/Resolving]
  - Decreased appetite [Not Recovered/Not Resolved]
  - COVID-19 [Recovering/Resolving]
  - Muscular weakness [Recovering/Resolving]
  - Asthenia [Not Recovered/Not Resolved]
  - Tuberculosis [Not Recovered/Not Resolved]
  - Asphyxia [Not Recovered/Not Resolved]
  - Lung disorder [Not Recovered/Not Resolved]
  - Pulmonary oedema [Recovered/Resolved]
  - Pharyngitis [Recovering/Resolving]

NARRATIVE: CASE EVENT DATE: 2020
